FAERS Safety Report 13634357 (Version 1)
Quarter: 2017Q2

REPORT INFORMATION
  Report Type: Spontaneous
  Country: US (occurrence: US)
  Receive Date: 20170531
  Receipt Date: 20170531
  Transmission Date: 20170830
  Serious: No
  Sender: FDA-Public Use
  Company Number: US-ASTELLAS-1623606

PATIENT
  Sex: Female

DRUGS (10)
  1. TARCEVA [Suspect]
     Active Substance: ERLOTINIB HYDROCHLORIDE
     Indication: LUNG NEOPLASM MALIGNANT
     Route: 048
     Dates: start: 20150724
  2. SUCRALFATE. [Concomitant]
     Active Substance: SUCRALFATE
  3. TARCEVA [Suspect]
     Active Substance: ERLOTINIB HYDROCHLORIDE
     Route: 048
     Dates: start: 20150629
  4. CRESTOR [Concomitant]
     Active Substance: ROSUVASTATIN CALCIUM
  5. TARCEVA [Suspect]
     Active Substance: ERLOTINIB HYDROCHLORIDE
     Route: 048
     Dates: start: 20150702
  6. LOSARTAN. [Concomitant]
     Active Substance: LOSARTAN
  7. LUMIGAN [Concomitant]
     Active Substance: BIMATOPROST
  8. PAROXETINE. [Concomitant]
     Active Substance: PAROXETINE
  9. ASPIRIN. [Concomitant]
     Active Substance: ASPIRIN
  10. METOPROLOL. [Concomitant]
     Active Substance: METOPROLOL

REACTIONS (2)
  - Fatigue [Unknown]
  - Diarrhoea [Unknown]
